FAERS Safety Report 4527733-0 (Version None)
Quarter: 2004Q4

REPORT INFORMATION
  Report Type: 
  Country: None (occurrence: None)
  Receive Date: 20041122
  Receipt Date: 20040419
  Transmission Date: 20050328
  Serious: No
  Sender: FDA-Public Use
  Company Number: 2004-06575

PATIENT
  Age: 39 Year
  Sex: Male
  Weight: 74.8435 kg

DRUGS (1)
  1. HEPSERA [Suspect]
     Indication: HEPATITIS B
     Dosage: 10 MG, ONCE A DAY, ORAL
     Route: 048
     Dates: start: 20030625, end: 20040114

REACTIONS (1)
  - DRUG RESISTANCE [None]
